FAERS Safety Report 5032070-4 (Version None)
Quarter: 2006Q2

REPORT INFORMATION
  Report Type: 
  Country: None (occurrence: None)
  Receive Date: 20060619
  Receipt Date: 20060605
  Transmission Date: 20061013
  Serious: Yes (Other)
  Sender: FDA-Public Use
  Company Number: 2006BH010621

PATIENT
  Age: 67 Year
  Sex: Female

DRUGS (1)
  1. BALANCED SALT SOLUTION [Suspect]
     Indication: CATARACT OPERATION
     Dosage: 1 UNITS
     Dates: start: 20060515, end: 20060515

REACTIONS (2)
  - ENDOPHTHALMITIS [None]
  - STAPHYLOCOCCAL INFECTION [None]
